FAERS Safety Report 6580355-2 (Version None)
Quarter: 2010Q1

REPORT INFORMATION
  Report Type: 
  Country: None (occurrence: None)
  Receive Date: 20100203
  Receipt Date: 20100118
  Transmission Date: 20100710
  Serious: Yes (Death)
  Sender: FDA-Public Use
  Company Number: DSA_42477_2010

PATIENT
  Age: 29 Year
  Sex: Male

DRUGS (3)
  1. BUPROPION HCL [Suspect]
     Indication: DRUG USE FOR UNKNOWN INDICATION
     Dosage: DF ORAL
     Route: 048
  2. OLANZAPINE [Suspect]
     Indication: DRUG USE FOR UNKNOWN INDICATION
     Dosage: DF ORAL
     Route: 048
  3. CARVEDILOL [Suspect]
     Indication: DRUG USE FOR UNKNOWN INDICATION
     Dosage: DF ORAL
     Route: 048

REACTIONS (8)
  - BLOOD CALCIUM DECREASED [None]
  - BLOOD GLUCOSE INCREASED [None]
  - CARDIAC ARREST [None]
  - CYANOSIS [None]
  - DYSPNOEA [None]
  - NO THERAPEUTIC RESPONSE [None]
  - POISONING [None]
  - UNRESPONSIVE TO STIMULI [None]
